FAERS Safety Report 6213145-0 (Version None)
Quarter: 2009Q2

REPORT INFORMATION
  Report Type: 
  Country: None (occurrence: None)
  Receive Date: 20090601
  Receipt Date: 20090601
  Transmission Date: 20091009
  Serious: Yes (Hospitalization)
  Sender: FDA-Public Use
  Company Number: None

PATIENT
  Age: 56 Year
  Sex: Male

DRUGS (1)
  1. INSULIN [Suspect]
     Dosage: 13 UNITS AM SQ
     Route: 058
     Dates: start: 20060922, end: 20090529

REACTIONS (1)
  - HYPOGLYCAEMIA [None]
